FAERS Safety Report 9783109 (Version 6)
Quarter: 2015Q2

REPORT INFORMATION
  Report Type: Spontaneous
  Country: US (occurrence: US)
  Receive Date: 20131226
  Receipt Date: 20150525
  Transmission Date: 20150821
  Serious: No
  Sender: FDA-Public Use
  Company Number: US-JNJFOC-20131106819

PATIENT
  Age: 74 Year
  Sex: Male
  Weight: 106.6 kg

DRUGS (11)
  1. OXYCODONE HCL [Concomitant]
     Active Substance: OXYCODONE HYDROCHLORIDE
     Indication: BACK PAIN
     Dosage: USING FOR 2 OR MORE YEARS
     Route: 048
  2. XARELTO [Suspect]
     Active Substance: RIVAROXABAN
     Indication: ATRIAL FIBRILLATION
     Route: 048
     Dates: start: 20130425
  3. XARELTO [Suspect]
     Active Substance: RIVAROXABAN
     Indication: CEREBROVASCULAR ACCIDENT PROPHYLAXIS
     Route: 048
     Dates: start: 20130425
  4. LISINOPRIL. [Concomitant]
     Active Substance: LISINOPRIL
     Indication: BLOOD PRESSURE
     Dosage: USING FOR 2 OR MORE YEARS
     Route: 048
     Dates: start: 2012
  5. SAW PALMETTO [Concomitant]
     Active Substance: SAW PALMETTO
     Dosage: USING FOR 2 OR MORE YEARS
     Route: 065
  6. AMLODIPINE [Concomitant]
     Active Substance: AMLODIPINE BESYLATE
     Indication: BLOOD PRESSURE
     Dosage: USING FOR 2 OR MORE YEARS
     Route: 048
     Dates: start: 2010
  7. ALEVE [Concomitant]
     Active Substance: NAPROXEN SODIUM
     Dosage: USING FOR 2 OR MORE YEARS
     Route: 048
  8. GABAPENTIN. [Concomitant]
     Active Substance: GABAPENTIN
     Indication: PRODUCT USED FOR UNKNOWN INDICATION
     Dosage: USING FOR 2 OR MORE YEARS
     Route: 048
     Dates: start: 2010
  9. OMEPRAZOLE. [Concomitant]
     Active Substance: OMEPRAZOLE
     Indication: GASTROOESOPHAGEAL REFLUX DISEASE
     Dosage: USING FOR 2 OR MORE YEARS
     Route: 048
  10. SIMVASTATIN. [Concomitant]
     Active Substance: SIMVASTATIN
     Indication: BLOOD CHOLESTEROL
     Dosage: EVERY EVENING, USING FOR 2 OR MORE YEARS.
     Route: 048
     Dates: start: 2008
  11. FENOFIBRATE. [Concomitant]
     Active Substance: FENOFIBRATE
     Indication: HIGH DENSITY LIPOPROTEIN
     Dosage: USING FOR 2 OR MORE YEARS
     Route: 048
     Dates: start: 2011

REACTIONS (2)
  - Petechiae [Recovered/Resolved]
  - Irritability [Not Recovered/Not Resolved]

NARRATIVE: CASE EVENT DATE: 201306
